FAERS Safety Report 8019914-9 (Version None)
Quarter: 2012Q1

REPORT INFORMATION
  Report Type: 
  Country: None (occurrence: None)
  Receive Date: 20120103
  Receipt Date: 20111227
  Transmission Date: 20120608
  Serious: Yes (Other)
  Sender: FDA-Public Use
  Company Number: US-BAYER-2011-013986

PATIENT
  Age: 22 Year
  Sex: Female
  Weight: 56.689 kg

DRUGS (9)
  1. CIPROFLOXACIN [Concomitant]
     Indication: URINARY TRACT INFECTION
  2. PENICILLIN [Concomitant]
     Dosage: UNK
     Dates: start: 20070401
  3. YASMIN [Suspect]
     Indication: PRODUCT USED FOR UNKNOWN INDICATION
     Dosage: UNK
     Route: 048
     Dates: start: 20060801, end: 20080701
  4. LORTAB [Concomitant]
     Dosage: UNK UNK, PRN
  5. CRANBERRY EXTRACT [Concomitant]
  6. YASMIN [Suspect]
     Dosage: UNK
  7. PHENERGAN [Concomitant]
     Dosage: UNK UNK, PRN
  8. MACROBID [Concomitant]
     Dosage: UNK UNK, PRN
  9. AMOXICILLIN [Concomitant]
     Dosage: UNK
     Dates: start: 20070301, end: 20070401

REACTIONS (10)
  - CHOLECYSTITIS CHRONIC [None]
  - INJURY [None]
  - EMOTIONAL DISTRESS [None]
  - FAECAL INCONTINENCE [None]
  - GALLBLADDER DISORDER [None]
  - CHOLELITHIASIS [None]
  - ABDOMINAL PAIN [None]
  - WEIGHT INCREASED [None]
  - ANXIETY [None]
  - SCAR [None]
